FAERS Safety Report 18607013 (Version 2)
Quarter: 2021Q1

REPORT INFORMATION
  Report Type: Spontaneous
  Country: US (occurrence: US)
  Receive Date: 20201211
  Receipt Date: 20210305
  Transmission Date: 20210419
  Serious: No
  Sender: FDA-Public Use
  Company Number: US-MILLICENT HOLDINGS LTD.-MILL20201040

PATIENT
  Age: 53 Year
  Sex: Female
  Weight: 54.55 kg

DRUGS (7)
  1. FEMRING [Suspect]
     Active Substance: ESTRADIOL ACETATE
     Indication: NIGHT SWEATS
  2. CELECOXIB. [Concomitant]
     Active Substance: CELECOXIB
     Indication: PAIN
     Dosage: 50 MG
     Route: 048
  3. FEMRING [Suspect]
     Active Substance: ESTRADIOL ACETATE
     Indication: HORMONE THERAPY
  4. ALBUTEROL. [Concomitant]
     Active Substance: ALBUTEROL
     Indication: DYSPNOEA
     Dosage: 108 MCG/ACT
     Route: 055
  5. FEMRING [Suspect]
     Active Substance: ESTRADIOL ACETATE
     Indication: MENOPAUSAL SYMPTOMS
     Dosage: 0.10 MG
     Route: 067
     Dates: start: 20201106, end: 20201205
  6. FEMRING [Suspect]
     Active Substance: ESTRADIOL ACETATE
     Indication: POSTMENOPAUSE
  7. FEXOFENADINE [Concomitant]
     Active Substance: FEXOFENADINE HYDROCHLORIDE
     Indication: SEASONAL ALLERGY
     Dosage: 60 MG
     Route: 048

REACTIONS (13)
  - Headache [Recovered/Resolved]
  - Device expulsion [Recovered/Resolved]
  - Hot flush [Recovered/Resolved]
  - Depression [Recovered/Resolved]
  - Abdominal pain lower [Recovered/Resolved]
  - Constipation [Recovered/Resolved]
  - Insomnia [Recovered/Resolved]
  - Dysuria [Recovered/Resolved]
  - Asthenia [Recovered/Resolved]
  - Pain [Recovering/Resolving]
  - Therapeutic response unexpected [Unknown]
  - Product physical issue [Unknown]
  - Urine output decreased [Recovered/Resolved]

NARRATIVE: CASE EVENT DATE: 202011
